FAERS Safety Report 23665044 (Version 1)
Quarter: 2024Q1

REPORT INFORMATION
  Report Type: Spontaneous
  Country: US (occurrence: US)
  Receive Date: 20240322
  Receipt Date: 20240322
  Transmission Date: 20240410
  Serious: No
  Sender: FDA-Public Use
  Company Number: US-SANDOZ-SDZ2024US030498

PATIENT
  Sex: Female

DRUGS (1)
  1. OMNITROPE [Suspect]
     Active Substance: SOMATROPIN
     Indication: Illness
     Dosage: 10 MG/KG, QD
     Route: 030
     Dates: start: 20230301, end: 20231115

REACTIONS (2)
  - Illness [Unknown]
  - Bedridden [Unknown]
